FAERS Safety Report 11447183 (Version 2)
Quarter: 2015Q4

REPORT INFORMATION
  Report Type: Report from Study
  Country: BR (occurrence: BR)
  Receive Date: 20150902
  Receipt Date: 20151202
  Transmission Date: 20160304
  Serious: Yes (Other)
  Sender: FDA-Public Use
  Company Number: PHHY2015BR105470

PATIENT
  Sex: Male
  Weight: 80 kg

DRUGS (2)
  1. EXJADE [Suspect]
     Active Substance: DEFERASIROX
     Indication: IRON OVERLOAD
     Dosage: 2 DF OF 250 MG, QD
     Route: 048
     Dates: start: 2013
  2. EXJADE [Suspect]
     Active Substance: DEFERASIROX
     Dosage: 1 DF, QD (FOR 1 WEEK)
     Route: 065

REACTIONS (5)
  - Hepatic cancer [Recovering/Resolving]
  - Hernia [Unknown]
  - Serum ferritin increased [Recovering/Resolving]
  - Post procedural inflammation [Unknown]
  - Weight decreased [Unknown]

NARRATIVE: CASE EVENT DATE: 2013
